FAERS Safety Report 25707107 (Version 1)
Quarter: 2025Q3

REPORT INFORMATION
  Report Type: Spontaneous
  Country: GB (occurrence: GB)
  Receive Date: 20250820
  Receipt Date: 20250820
  Transmission Date: 20251021
  Serious: Yes (Life-Threatening, Other)
  Sender: ELI LILLY AND COMPANY
  Company Number: None

PATIENT
  Age: 59 Year
  Sex: Female

DRUGS (2)
  1. MOUNJARO [Interacting]
     Active Substance: TIRZEPATIDE
     Indication: Weight control
     Route: 065
     Dates: start: 202411, end: 202412
  2. VENLAFAXINE [Interacting]
     Active Substance: VENLAFAXINE HYDROCHLORIDE
     Indication: Product used for unknown indication
     Route: 065

REACTIONS (5)
  - Depression suicidal [Recovering/Resolving]
  - Anxiety [Unknown]
  - Depressed mood [Unknown]
  - Suicide attempt [Unknown]
  - Drug interaction [Unknown]

NARRATIVE: CASE EVENT DATE: 20250101
